FAERS Safety Report 22087422 (Version 3)
Quarter: 2023Q1

REPORT INFORMATION
  Report Type: Spontaneous
  Country: US (occurrence: US)
  Receive Date: 20230313
  Receipt Date: 20230325
  Transmission Date: 20230418
  Serious: No
  Sender: FDA-Public Use
  Company Number: US-BRISTOL-MYERS SQUIBB COMPANY-2023-036032

PATIENT
  Age: 70 Year
  Sex: Female

DRUGS (2)
  1. CAMZYOS [Suspect]
     Active Substance: MAVACAMTEN
     Indication: Product used for unknown indication
     Dosage: DOSE : 5;     FREQ : ONE CAP PO QD
     Route: 048
  2. CAMZYOS [Suspect]
     Active Substance: MAVACAMTEN
     Dosage: DOSE : 10;     FREQ : ONE CAP PO QD
     Route: 048

REACTIONS (3)
  - Product dose omission issue [Unknown]
  - Urinary tract infection [Unknown]
  - Folliculitis [Unknown]
